FAERS Safety Report 9233199 (Version 1)
Quarter: 2013Q2

REPORT INFORMATION
  Report Type: Spontaneous
  Country: BR (occurrence: BR)
  Receive Date: 20130416
  Receipt Date: 20130416
  Transmission Date: 20140414
  Serious: Yes (Other)
  Sender: FDA-Public Use
  Company Number: BR-AMGEN-BRASP2013025552

PATIENT
  Age: 52 Year
  Sex: Female
  Weight: 65 kg

DRUGS (3)
  1. ENBREL [Suspect]
     Indication: RHEUMATOID ARTHRITIS
     Dosage: 25 MG, UNK
     Dates: start: 201206
  2. ENBREL [Suspect]
     Dosage: 50 MG, ONCE WEEKLY
     Dates: end: 201212
  3. AZULFIN [Concomitant]
     Dosage: UNK

REACTIONS (3)
  - Rheumatoid arthritis [Unknown]
  - Drug ineffective [Unknown]
  - Lung infection [Unknown]
